FAERS Safety Report 4899930-6 (Version None)
Quarter: 2006Q1

REPORT INFORMATION
  Report Type: 
  Country: None (occurrence: None)
  Receive Date: 20060203
  Receipt Date: 20060124
  Transmission Date: 20060701
  Serious: Yes (Other)
  Sender: FDA-Public Use
  Company Number: HU-JNJFOC-20060104744

PATIENT
  Sex: Male
  Weight: 90 kg

DRUGS (2)
  1. REMICADE [Suspect]
     Indication: ANKYLOSING SPONDYLITIS
     Dosage: 4 INFUSIONS
     Route: 042
  2. ISONIAZID [Concomitant]
     Indication: ANTIBIOTIC PROPHYLAXIS
     Route: 048

REACTIONS (1)
  - PUSTULAR PSORIASIS [None]
